FAERS Safety Report 11174867 (Version 1)
Quarter: 2015Q2

REPORT INFORMATION
  Report Type: Spontaneous
  Country: FR (occurrence: FR)
  Receive Date: 20150609
  Receipt Date: 20150609
  Transmission Date: 20150821
  Serious: Yes (Life-Threatening)
  Sender: FDA-Public Use
  Company Number: FR-PFIZER INC-2015191357

PATIENT
  Age: 79 Year
  Sex: Male

DRUGS (12)
  1. PLAVIX [Suspect]
     Active Substance: CLOPIDOGREL BISULFATE
     Indication: PROPHYLAXIS
     Dosage: 75 MG, 1X/DAY
     Route: 048
     Dates: end: 20150223
  2. RAMIPRIL. [Concomitant]
     Active Substance: RAMIPRIL
  3. SPECIAFOLDINE [Concomitant]
     Active Substance: FOLIC ACID
  4. CIFLOX [Suspect]
     Active Substance: CIPROFLOXACIN
     Dosage: 500 MG, 2X/DAY
     Dates: start: 20150202
  5. ACEBUTOLOL [Concomitant]
     Active Substance: ACEBUTOLOL
  6. VOGALENE [Suspect]
     Active Substance: METOPIMAZINE
     Dosage: UNK
     Route: 048
     Dates: start: 20150206, end: 20150215
  7. TRIFLUCAN [Suspect]
     Active Substance: FLUCONAZOLE
     Dosage: 500 MG, 2X/DAY
     Route: 048
     Dates: start: 20150206, end: 20150221
  8. LOVENOX [Suspect]
     Active Substance: ENOXAPARIN SODIUM
     Indication: THROMBOSIS PROPHYLAXIS
     Dosage: 0.6 ML, 2X/DAY
     Route: 058
     Dates: start: 20150202
  9. FUROSEMIDE. [Concomitant]
     Active Substance: FUROSEMIDE
  10. DIFFU K [Concomitant]
     Active Substance: POTASSIUM CHLORIDE
  11. CORDARONE ACTAVIS [Concomitant]
  12. ROCEPHINE [Suspect]
     Active Substance: CEFTRIAXONE SODIUM
     Dosage: 2 G, 1X/DAY
     Route: 030
     Dates: start: 20150202, end: 20150202

REACTIONS (2)
  - Haemorrhage [Recovered/Resolved]
  - Hypovolaemic shock [Recovered/Resolved]

NARRATIVE: CASE EVENT DATE: 20150223
